FAERS Safety Report 9007535 (Version 1)
Quarter: 2013Q1

REPORT INFORMATION
  Report Type: Spontaneous
  Country: DE (occurrence: DE)
  Receive Date: 20130111
  Receipt Date: 20130111
  Transmission Date: 20140127
  Serious: Yes (Hospitalization, Other)
  Sender: FDA-Public Use
  Company Number: DE-ELI_LILLY_AND_COMPANY-DE201301002164

PATIENT
  Age: 61 Year
  Sex: Male

DRUGS (9)
  1. BYETTA [Suspect]
     Indication: DIABETES MELLITUS
     Dosage: 10 UG, UNKNOWN
     Route: 058
     Dates: start: 201001
  2. INSULIN [Concomitant]
     Dosage: UNK
  3. RAMIPRIL [Concomitant]
     Dosage: 2.5 MG, UNKNOWN
  4. RAMIPRIL [Concomitant]
     Dosage: 12.5 MG, UNKNOWN
  5. SIMVA [Concomitant]
     Dosage: 40 MG, UNKNOWN
  6. TORASEMID [Concomitant]
     Dosage: 10 MG, UNKNOWN
  7. JANUMET [Concomitant]
  8. OMACOR [Concomitant]
  9. ASS [Concomitant]
     Dosage: 100 MG, UNKNOWN

REACTIONS (1)
  - Myocardial infarction [Recovering/Resolving]
